FAERS Safety Report 12962127 (Version 1)
Quarter: 2016Q4

REPORT INFORMATION
  Report Type: Spontaneous
  Country: BR (occurrence: BR)
  Receive Date: 20161121
  Receipt Date: 20161121
  Transmission Date: 20170207
  Serious: Yes (Hospitalization)
  Sender: FDA-Public Use
  Company Number: BR-GLAXOSMITHKLINE-BR2016GSK166572

PATIENT
  Age: 1 Year
  Sex: Male
  Weight: 8.5 kg

DRUGS (2)
  1. ZINNAT [Suspect]
     Active Substance: CEFUROXIME AXETIL
     Indication: EAR INFECTION
     Dosage: 2.5 ML, BID
     Route: 048
     Dates: start: 20160915, end: 20160916
  2. DIPYRONE [Concomitant]
     Active Substance: DIPYRONE
     Indication: PYREXIA
     Dosage: 8 DF, TID
     Route: 048

REACTIONS (9)
  - Diarrhoea [Recovered/Resolved]
  - Overdose [Recovered/Resolved]
  - Dehydration [Recovered/Resolved]
  - Drug prescribing error [Recovered/Resolved]
  - Dysphagia [Recovered/Resolved]
  - Vomiting [Recovered/Resolved]
  - Asthenia [Recovered/Resolved]
  - Dry mouth [Recovered/Resolved]
  - Off label use [Unknown]

NARRATIVE: CASE EVENT DATE: 20160915
